FAERS Safety Report 8677452 (Version 2)
Quarter: 2012Q4

REPORT INFORMATION
  Report Type: 
  Country: NO (occurrence: NO)
  Receive Date: 20120723
  Receipt Date: 20121003
  Transmission Date: 20130627
  Serious: Yes (Disabling, Other)
  Sender: FDA-Public Use
  Company Number: PHHY2012NO061812

PATIENT
  Age: 58 None
  Sex: Male

DRUGS (11)
  1. ZOMETA [Suspect]
     Indication: MULTIPLE MYELOMA
     Dosage: UNK
     Dates: start: 2003, end: 2005
  2. ZOMETA [Suspect]
     Indication: OSTEOPOROSIS
     Dates: start: 2003, end: 2005
  3. ZOMETA [Suspect]
     Indication: MULTIPLE MYELOMA
  4. LYRICA [Concomitant]
     Dosage: UNK UKN, UNK
     Route: 065
  5. OXYCONTIN [Concomitant]
     Dosage: UNK UKN, UNK
     Route: 065
  6. OXYNORM [Concomitant]
     Dosage: UNK UKN, UNK
     Route: 065
  7. INTRONA [Concomitant]
     Dosage: UNK UKN, UNK
     Route: 065
  8. FENTANYL [Concomitant]
     Dosage: UNK UKN, UNK
  9. MAREVAN [Concomitant]
     Dosage: UNK UKN, UNK
     Route: 065
  10. SIMVASTATIN [Concomitant]
     Dosage: UNK UKN, UNK
     Route: 065
  11. DECADRON [Concomitant]
     Dosage: UNK UKN, UNK
     Route: 065

REACTIONS (4)
  - Bone neoplasm [Unknown]
  - Osteonecrosis of jaw [Not Recovered/Not Resolved]
  - Bone lesion [Unknown]
  - Exposed bone in jaw [Unknown]
